FAERS Safety Report 6410691-1 (Version None)
Quarter: 2009Q4

REPORT INFORMATION
  Report Type: 
  Country: None (occurrence: None)
  Receive Date: 20091022
  Receipt Date: 20091014
  Transmission Date: 20100525
  Serious: Yes (Hospitalization)
  Sender: FDA-Public Use
  Company Number: JP-GILEAD-2008-0018016

PATIENT
  Sex: Male

DRUGS (6)
  1. TRUVADA [Suspect]
     Indication: HIV INFECTION
     Route: 048
     Dates: start: 20080109, end: 20080202
  2. KALETRA [Concomitant]
  3. SILECE [Concomitant]
  4. LANDSEN [Concomitant]
  5. ZYPREXA [Concomitant]
  6. BENAMBAX [Concomitant]

REACTIONS (1)
  - ILEUS [None]
